FAERS Safety Report 18877887 (Version 1)
Quarter: 2021Q1

REPORT INFORMATION
  Report Type: Spontaneous
  Country: US (occurrence: US)
  Receive Date: 20210211
  Receipt Date: 20210211
  Transmission Date: 20210420
  Serious: Yes (Hospitalization)
  Sender: FDA-Public Use
  Company Number: None

PATIENT
  Age: 32 Year
  Sex: Male

DRUGS (10)
  1. ZOLOFT [Concomitant]
     Active Substance: SERTRALINE HYDROCHLORIDE
     Dates: start: 20171006
  2. TRAZODONE [Concomitant]
     Active Substance: TRAZODONE HYDROCHLORIDE
     Dates: start: 20171006
  3. NEURONTIN [Concomitant]
     Active Substance: GABAPENTIN
     Dates: start: 20171006
  4. PROTEINEX [Concomitant]
     Dates: start: 20171006
  5. LYRICA [Concomitant]
     Active Substance: PREGABALIN
     Dates: start: 20171006
  6. FENTANYL. [Concomitant]
     Active Substance: FENTANYL
     Dates: start: 20171006
  7. ZOFRAN [Concomitant]
     Active Substance: ONDANSETRON HYDROCHLORIDE
     Dates: start: 20171006
  8. NORDITROPIN [Suspect]
     Active Substance: SOMATROPIN
     Indication: HYPOPITUITARISM
     Route: 058
     Dates: start: 20190306
  9. MORPHINE POWDER [Concomitant]
     Dates: start: 20171006
  10. VITAMIN D [Concomitant]
     Active Substance: VITAMIN D NOS
     Dates: start: 20171006

REACTIONS (2)
  - Eating disorder [None]
  - Blood glucose decreased [None]

NARRATIVE: CASE EVENT DATE: 20210201
